FAERS Safety Report 7849883-3 (Version None)
Quarter: 2011Q4

REPORT INFORMATION
  Report Type: 
  Country: None (occurrence: None)
  Receive Date: 20111025
  Receipt Date: 20111025
  Transmission Date: 20120403
  Serious: Yes (Hospitalization)
  Sender: FDA-Public Use
  Company Number: None

PATIENT
  Sex: Male
  Weight: 87.7 kg

DRUGS (1)
  1. CISPLATIN [Suspect]
     Dosage: 200 MG
     Dates: end: 20070910

REACTIONS (6)
  - MUCOSAL INFLAMMATION [None]
  - PAIN [None]
  - PNEUMONIA [None]
  - ASPIRATION [None]
  - VOMITING [None]
  - NAUSEA [None]
